FAERS Safety Report 20532382 (Version 1)
Quarter: 2022Q1

REPORT INFORMATION
  Report Type: Spontaneous
  Country: US (occurrence: None)
  Receive Date: 20220228
  Receipt Date: 20220228
  Transmission Date: 20220424
  Serious: No
  Sender: FDA-Public Use
  Company Number: None

PATIENT
  Age: 68 Year
  Sex: Female
  Weight: 55.8 kg

DRUGS (5)
  1. LEVOTHYROXINE SODIUM 50 MCG ORAL [Concomitant]
     Dosage: OTHER QUANTITY : 1 TABLET(S);?
     Route: 048
     Dates: start: 20220205, end: 20220222
  2. METHOTREXATE [Concomitant]
     Active Substance: METHOTREXATE
  3. FOLIC ACID [Concomitant]
     Active Substance: FOLIC ACID
  4. CITRACAL SLOW RELEASE [Concomitant]
  5. VITAMIN D3 [Concomitant]
     Active Substance: CHOLECALCIFEROL

REACTIONS (7)
  - Headache [None]
  - Anxiety [None]
  - Erythema [None]
  - Flushing [None]
  - Weight decreased [None]
  - Body temperature increased [None]
  - Product quality issue [None]

NARRATIVE: CASE EVENT DATE: 20220211
